FAERS Safety Report 13779372 (Version 1)
Quarter: 2017Q3

REPORT INFORMATION
  Report Type: Spontaneous
  Country: GB (occurrence: GB)
  Receive Date: 20170721
  Receipt Date: 20170721
  Transmission Date: 20171127
  Serious: Yes (Life-Threatening, Other)
  Sender: FDA-Public Use
  Company Number: GB-INTERNATIONAL MEDICATION SYSTEMS, LIMITED-2023609

PATIENT
  Sex: Male

DRUGS (2)
  1. MORPHINE [Suspect]
     Active Substance: MORPHINE
     Route: 058
  2. ACCORD HEALTHCARE MIDAZOLAM [Suspect]
     Active Substance: MIDAZOLAM HYDROCHLORIDE

REACTIONS (2)
  - Wrong patient received medication [Unknown]
  - Coma [Unknown]
